FAERS Safety Report 22294660 (Version 3)
Quarter: 2023Q4

REPORT INFORMATION
  Report Type: Report from Study
  Country: DE (occurrence: DE)
  Receive Date: 20230508
  Receipt Date: 20231027
  Transmission Date: 20240109
  Serious: Yes (Death, Other)
  Sender: FDA-Public Use
  Company Number: DE-002147023-NVSC2022DE252899

PATIENT
  Sex: Male

DRUGS (3)
  1. METHOTREXATE [Suspect]
     Active Substance: METHOTREXATE
     Indication: Rheumatoid arthritis
     Dosage: 7.5 MILLIGRAM (7.5 MG)
     Route: 065
     Dates: end: 202006
  2. HUMIRA [Suspect]
     Active Substance: ADALIMUMAB
     Indication: Product used for unknown indication
     Dosage: 40 MILLIGRAM (40 MG)
     Route: 065
     Dates: start: 201202, end: 201811
  3. HYRIMOZ [Suspect]
     Active Substance: ADALIMUMAB-ADAZ
     Indication: Rheumatoid arthritis
     Dosage: 40 MILLIGRAM (40 MG)
     Route: 065
     Dates: start: 201811, end: 202006

REACTIONS (6)
  - Cerebral haemorrhage [Fatal]
  - Vascular dementia [Unknown]
  - Brain neoplasm [Unknown]
  - Dementia [Unknown]
  - Pneumonia aspiration [Unknown]
  - Immobilisation syndrome [Unknown]

NARRATIVE: CASE EVENT DATE: 20200516
